FAERS Safety Report 13653587 (Version 1)
Quarter: 2017Q2

REPORT INFORMATION
  Report Type: Spontaneous
  Country: US (occurrence: US)
  Receive Date: 20170614
  Receipt Date: 20170614
  Transmission Date: 20170830
  Serious: No
  Sender: FDA-Public Use
  Company Number: US-ROCHE-1310932

PATIENT
  Age: 59 Year
  Sex: Female

DRUGS (17)
  1. ASPIRIN. [Concomitant]
     Active Substance: ASPIRIN
  2. OMEPRAZOLE. [Concomitant]
     Active Substance: OMEPRAZOLE
  3. ADVAIR HFA [Concomitant]
     Active Substance: FLUTICASONE PROPIONATE\SALMETEROL XINAFOATE
  4. HYDROCORTISONE. [Concomitant]
     Active Substance: HYDROCORTISONE
  5. CARAFATE [Concomitant]
     Active Substance: SUCRALFATE
  6. FLUTICASONE. [Concomitant]
     Active Substance: FLUTICASONE
  7. LOVAZA [Concomitant]
     Active Substance: OMEGA-3-ACID ETHYL ESTERS
  8. LOSARTAN. [Concomitant]
     Active Substance: LOSARTAN
  9. XELODA [Suspect]
     Active Substance: CAPECITABINE
     Dosage: 2 IN MORNING AND 2 IN AFTERNNON AFTER SUPPER
     Route: 048
     Dates: start: 20131002
  10. OCUVITE PRESERVISION [Concomitant]
     Dosage: DRUG NAME: OCUVITE
     Route: 065
  11. SYNTHROID [Concomitant]
     Active Substance: LEVOTHYROXINE SODIUM
  12. XELODA [Suspect]
     Active Substance: CAPECITABINE
     Route: 048
  13. XELODA [Suspect]
     Active Substance: CAPECITABINE
     Indication: PRODUCT USED FOR UNKNOWN INDICATION
     Dosage: 2 IN MORNING AND 3 IN AFTERNNON AFTER SUPPER
     Route: 048
     Dates: start: 20130814
  14. HERCEPTIN [Suspect]
     Active Substance: TRASTUZUMAB
     Indication: PRODUCT USED FOR UNKNOWN INDICATION
     Route: 065
  15. CRESTOR [Concomitant]
     Active Substance: ROSUVASTATIN CALCIUM
  16. VITAMIN C [Concomitant]
     Active Substance: ASCORBIC ACID
  17. CIPRO [Concomitant]
     Active Substance: CIPROFLOXACIN HYDROCHLORIDE

REACTIONS (4)
  - Therapy change [Unknown]
  - Diarrhoea [Unknown]
  - Dry skin [Unknown]
  - Abdominal discomfort [Unknown]

NARRATIVE: CASE EVENT DATE: 20130814
